FAERS Safety Report 6681515-2 (Version None)
Quarter: 2010Q2

REPORT INFORMATION
  Report Type: 
  Country: None (occurrence: None)
  Receive Date: 20100414
  Receipt Date: 20100331
  Transmission Date: 20101027
  Serious: Yes (Other)
  Sender: FDA-Public Use
  Company Number: PHHY2009JP09958

PATIENT
  Sex: Male
  Weight: 56 kg

DRUGS (16)
  1. CERTICAN [Suspect]
     Indication: HEART TRANSPLANT
     Dosage: 1.5 MG, DAILY
     Route: 048
     Dates: start: 20080724
  2. CERTICAN [Suspect]
     Dosage: 1.75 MG, DAILY
     Route: 048
     Dates: start: 20080808, end: 20080819
  3. CERTICAN [Suspect]
     Dosage: 0.5 MG, DAILY
     Route: 048
  4. CERTICAN [Suspect]
     Dosage: 1.25 MG, DAILY
     Route: 048
     Dates: start: 20080903
  5. NEORAL [Suspect]
     Indication: HEART TRANSPLANT
     Dosage: 180 MG, DAILY
     Route: 048
     Dates: start: 20070207
  6. NEORAL [Suspect]
     Dosage: 160 MG, DAILY
     Route: 048
     Dates: start: 20080726
  7. NEORAL [Suspect]
     Dosage: 140 MG, DAILY
     Route: 048
     Dates: start: 20080729
  8. CARBAMAZEPINE [Suspect]
  9. PREDONINE [Suspect]
     Indication: HEART TRANSPLANT
     Dosage: UNK
     Route: 048
     Dates: start: 20040201
  10. PREDONINE [Suspect]
     Dosage: UNK
     Route: 048
     Dates: end: 20070101
  11. PREDONINE [Suspect]
     Dosage: UNK
     Route: 048
  12. CELLCEPT [Suspect]
     Indication: RENAL TRANSPLANT
     Dosage: 1.25 G, DAILY
     Route: 048
     Dates: start: 20040209, end: 20080723
  13. CELLCEPT [Suspect]
     Dosage: UNK
     Route: 048
     Dates: end: 20080701
  14. NORVASC [Concomitant]
     Indication: HYPERTENSION
     Dosage: 7.5 MG, UNK
     Route: 048
  15. VALGANCICLOVIR HCL [Concomitant]
     Indication: INFECTION PROPHYLAXIS
  16. COTRIM [Concomitant]
     Indication: ANTIFUNGAL PROPHYLAXIS

REACTIONS (12)
  - CORONARY ARTERY DISEASE [None]
  - CYTOMEGALOVIRUS INFECTION [None]
  - EPSTEIN-BARR VIRUS INFECTION [None]
  - IMMUNOSUPPRESSANT DRUG LEVEL DECREASED [None]
  - INTERLEUKIN-2 RECEPTOR INCREASED [None]
  - LYMPHOMA [None]
  - MALAISE [None]
  - PANEL-REACTIVE ANTIBODY INCREASED [None]
  - SNAKE BITE [None]
  - TRANSPLANT REJECTION [None]
  - WHITE BLOOD CELL COUNT DECREASED [None]
  - WOUND [None]
